FAERS Safety Report 10219677 (Version 1)
Quarter: 2014Q2

REPORT INFORMATION
  Report Type: Spontaneous
  Country: FR (occurrence: FR)
  Receive Date: 20140605
  Receipt Date: 20140605
  Transmission Date: 20141212
  Serious: Yes (Other)
  Sender: FDA-Public Use
  Company Number: FR-ACTAVIS-2014-12142

PATIENT
  Age: 34 Year
  Sex: Male

DRUGS (3)
  1. QUETIAPINE FUMARATE (UNKNOWN) [Suspect]
     Indication: PARANOIA
     Dosage: 600 KG, DAILY
     Route: 065
  2. CLOZAPINE (UNKNOWN) [Suspect]
     Indication: PARANOIA
     Dosage: UNK
     Route: 065
  3. CLORAZEPATE [Concomitant]
     Indication: SCHIZOPHRENIA
     Dosage: 40 MG, DAILY
     Route: 065

REACTIONS (1)
  - Inflammatory bowel disease [Recovering/Resolving]
